FAERS Safety Report 4647987-X (Version None)
Quarter: 2005Q2

REPORT INFORMATION
  Report Type: 
  Country: None (occurrence: None)
  Receive Date: 20050331
  Receipt Date: 20040119
  Transmission Date: 20051028
  Serious: No
  Sender: FDA-Public Use
  Company Number: 05P-163-0287330

PATIENT
  Age: 66 Year
  Sex: Male
  Weight: 70.7611 kg

DRUGS (7)
  1. HUMIRA [Suspect]
     Indication: RHEUMATOID ARTHRITIS
     Dosage: 40 MG, 1 IN 1 WK, SUBCUTANEOUS
     Route: 058
     Dates: start: 20031001
  2. CARVEDILOL [Concomitant]
  3. ALENDRONATE SODIUM [Concomitant]
  4. MULTIVITAMIN [Concomitant]
  5. CYCLOBENZAPRINE HYDROCHLORIDE [Concomitant]
  6. CALCIUM WITH VITAMIN D [Concomitant]
  7. PREDNISONE [Concomitant]

REACTIONS (1)
  - ALOPECIA [None]
